FAERS Safety Report 26163341 (Version 1)
Quarter: 2025Q4

REPORT INFORMATION
  Report Type: Spontaneous
  Country: JP (occurrence: JP)
  Receive Date: 20251216
  Receipt Date: 20251216
  Transmission Date: 20260118
  Serious: Yes (Hospitalization, Other)
  Sender: MERCK SHARP & DOHME LLC
  Company Number: JP-ONO-2025JP020759

PATIENT
  Age: 73 Year
  Sex: Male
  Weight: 59.4 kg

DRUGS (12)
  1. EMEND [Suspect]
     Active Substance: APREPITANT
     Indication: Prophylaxis of nausea and vomiting
     Dosage: 80 MG, EVERYDAY
     Route: 048
  2. EMEND [Suspect]
     Active Substance: APREPITANT
     Indication: Prophylaxis of nausea and vomiting
     Dosage: 125 MG
     Route: 048
     Dates: start: 20250814
  3. OPDIVO [Suspect]
     Active Substance: NIVOLUMAB
     Indication: Gastric cancer
     Dosage: 360 MG
     Route: 042
     Dates: start: 20250814
  4. CARBAMAZEPINE [Concomitant]
     Active Substance: CARBAMAZEPINE
     Dosage: 100 MG, Q12H
     Route: 048
  5. NKS-1 [Concomitant]
     Indication: Gastric cancer
     Dosage: 60 MG, Q12H
     Route: 048
     Dates: start: 20250814
  6. DEXAMETHASONE SODIUM PHOSPHATE [Concomitant]
     Active Substance: DEXAMETHASONE SODIUM PHOSPHATE
     Dosage: 9.9 MG
     Route: 042
     Dates: start: 20250814
  7. PRIMIDONE [Concomitant]
     Active Substance: PRIMIDONE
     Dosage: 200 MG, Q12H
     Route: 048
  8. OXALIPLATIN [Concomitant]
     Active Substance: OXALIPLATIN
     Indication: Gastric cancer
     Dosage: 200 MG
     Route: 042
     Dates: start: 20250814
  9. PALONOSETRON [Concomitant]
     Active Substance: PALONOSETRON
     Dosage: 0.75 MG
     Route: 042
     Dates: start: 20250814
  10. ESOMEPRAZOLE [Concomitant]
     Active Substance: ESOMEPRAZOLE
     Dosage: 20 MG, EVERYDAY
     Route: 048
     Dates: start: 20250813
  11. FOLIC ACID [Concomitant]
     Active Substance: FOLIC ACID
     Dosage: 2.5 MG, EVERYDAY
     Route: 048
  12. PHENYTOIN SODIUM [Concomitant]
     Active Substance: PHENYTOIN SODIUM
     Dosage: 100 MG, Q12H
     Route: 048

REACTIONS (1)
  - Immune-mediated dermatitis [Recovered/Resolved]

NARRATIVE: CASE EVENT DATE: 20250828
